FAERS Safety Report 6073177-2 (Version None)
Quarter: 2009Q1

REPORT INFORMATION
  Report Type: 
  Country: None (occurrence: None)
  Receive Date: 20090211
  Receipt Date: 20090130
  Transmission Date: 20090719
  Serious: Yes (Hospitalization)
  Sender: FDA-Public Use
  Company Number: FR-AMGEN-US331846

PATIENT
  Sex: Female

DRUGS (10)
  1. ENBREL [Suspect]
     Indication: RHEUMATOID ARTHRITIS
     Route: 058
     Dates: start: 20061201, end: 20080601
  2. CORTANCYL [Suspect]
     Indication: RHEUMATOID ARTHRITIS
     Route: 048
  3. SEREVENT [Concomitant]
     Dosage: UNKNOWN
     Route: 055
  4. SPIRIVA [Concomitant]
     Dosage: UNKNOWN
     Route: 055
  5. KLIPAL [Concomitant]
     Dosage: UNKNOWN
     Route: 065
  6. ACTONEL [Concomitant]
     Dosage: UNKNOWN
     Route: 065
  7. GAVISCON [Concomitant]
     Dosage: UNKNOWN
     Route: 065
  8. NEXIUM [Concomitant]
     Dosage: UNKNOWN
     Route: 065
  9. ATROVENT [Concomitant]
     Dosage: UNKNOWN
     Route: 055
  10. ESBERIVEN [Concomitant]
     Dosage: UNKNOWN
     Route: 065

REACTIONS (4)
  - CHRONIC SINUSITIS [None]
  - DYSPNOEA [None]
  - INCREASED BRONCHIAL SECRETION [None]
  - PYREXIA [None]
